FAERS Safety Report 6545962-1 (Version None)
Quarter: 2010Q1

REPORT INFORMATION
  Report Type: 
  Country: None (occurrence: None)
  Receive Date: 20100121
  Receipt Date: 20100121
  Transmission Date: 20100710
  Serious: Yes (Other)
  Sender: FDA-Public Use
  Company Number: None

PATIENT
  Age: 34 Year
  Sex: Male
  Weight: 117.9352 kg

DRUGS (1)
  1. ALLI [Suspect]
     Indication: WEIGHT DECREASED
     Dosage: 60 MG 2-3 TIMES A DAY PO
     Route: 048
     Dates: start: 20091223, end: 20100119

REACTIONS (18)
  - ASTHENIA [None]
  - COUGH [None]
  - DEPRESSION [None]
  - DIARRHOEA [None]
  - DIZZINESS [None]
  - EAR PAIN [None]
  - HEADACHE [None]
  - HEARING IMPAIRED [None]
  - INFLUENZA LIKE ILLNESS [None]
  - INSOMNIA [None]
  - LABYRINTHITIS [None]
  - LOWER RESPIRATORY TRACT INFECTION [None]
  - MALAISE [None]
  - MIGRAINE [None]
  - NAUSEA [None]
  - NECK PAIN [None]
  - PNEUMONIA [None]
  - PRODUCT COUNTERFEIT [None]
